FAERS Safety Report 7766580-3 (Version None)
Quarter: 2011Q3

REPORT INFORMATION
  Report Type: 
  Country: None (occurrence: None)
  Receive Date: 20110922
  Receipt Date: 20110908
  Transmission Date: 20111222
  Serious: Yes (Life-Threatening, Hospitalization)
  Sender: FDA-Public Use
  Company Number: US-RANBAXY-2011US-48373

PATIENT
  Age: 43 Year
  Sex: Male

DRUGS (2)
  1. BISOPROLOL FUMARATE [Suspect]
     Indication: PRODUCT USED FOR UNKNOWN INDICATION
     Dosage: UNK
     Route: 048
  2. VERAPAMIL [Suspect]
     Indication: PRODUCT USED FOR UNKNOWN INDICATION
     Dosage: 14.4 G DAILY
     Route: 048

REACTIONS (4)
  - CARDIOGENIC SHOCK [None]
  - TOXICITY TO VARIOUS AGENTS [None]
  - OVERDOSE [None]
  - MULTI-ORGAN FAILURE [None]
